FAERS Safety Report 20843805 (Version 2)
Quarter: 2022Q4

REPORT INFORMATION
  Report Type: Spontaneous
  Country: US (occurrence: US)
  Receive Date: 20220518
  Receipt Date: 20221227
  Transmission Date: 20230113
  Serious: Yes (Other)
  Sender: FDA-Public Use
  Company Number: US-PFIZER INC-202200696693

PATIENT
  Age: 52 Year
  Sex: Male

DRUGS (1)
  1. XELJANZ [Suspect]
     Active Substance: TOFACITINIB CITRATE
     Indication: Colitis ulcerative
     Dosage: 10 MG, 1X/DAY (ONCE DAILY)
     Route: 048
     Dates: start: 2020

REACTIONS (3)
  - Rectal haemorrhage [Unknown]
  - Bowel movement irregularity [Unknown]
  - Off label use [Unknown]
